FAERS Safety Report 8445210-1 (Version None)
Quarter: 2012Q2

REPORT INFORMATION
  Report Type: 
  Country: None (occurrence: None)
  Receive Date: 20120608
  Receipt Date: 20120601
  Transmission Date: 20120825
  Serious: Yes (Other)
  Sender: FDA-Public Use
  Company Number: DSA_57606_2012

PATIENT
  Sex: Male

DRUGS (1)
  1. XENAZINE [Suspect]
     Indication: MUSCLE SPASMS
     Dosage: (12.5 MG QD ORAL)
     Route: 048
     Dates: end: 20120529

REACTIONS (1)
  - DEEP BRAIN STIMULATION [None]
